FAERS Safety Report 25407806 (Version 1)
Quarter: 2025Q2

REPORT INFORMATION
  Report Type: Spontaneous
  Country: US (occurrence: US)
  Receive Date: 20250606
  Receipt Date: 20250606
  Transmission Date: 20250717
  Serious: No
  Sender: FOUNDATION CONSUMER HEALTHCARE
  Company Number: US-FOUNDATIONCONSUMERHC-2024-US-062108

PATIENT
  Sex: Female

DRUGS (1)
  1. PLAN B ONE-STEP [Suspect]
     Active Substance: LEVONORGESTREL
     Indication: Contraception
     Route: 048
     Dates: end: 20241117

REACTIONS (6)
  - Intentional product misuse [Recovered/Resolved]
  - Nausea [Unknown]
  - Dizziness [Unknown]
  - Dysmenorrhoea [Unknown]
  - Diarrhoea [Unknown]
  - Product use in unapproved indication [Recovered/Resolved]
